FAERS Safety Report 4899018-4 (Version None)
Quarter: 2006Q1

REPORT INFORMATION
  Report Type: 
  Country: None (occurrence: None)
  Receive Date: 20060127
  Receipt Date: 20060110
  Transmission Date: 20060701
  Serious: Yes (Other)
  Sender: FDA-Public Use
  Company Number: US200601001548

PATIENT
  Age: 41 Year
  Sex: Female

DRUGS (1)
  1. ILETIN [Suspect]
     Indication: DIABETES MELLITUS

REACTIONS (2)
  - BLOOD PRESSURE ABNORMAL [None]
  - CEREBROVASCULAR ACCIDENT [None]
